FAERS Safety Report 17255097 (Version 2)
Quarter: 2020Q1

REPORT INFORMATION
  Report Type: Spontaneous
  Country: AT (occurrence: AT)
  Receive Date: 20200109
  Receipt Date: 20200125
  Transmission Date: 20200409
  Serious: Yes (Disabling, Other)
  Sender: FDA-Public Use
  Company Number: AT-ROCHE-2518298

PATIENT
  Age: 79 Year
  Sex: Female

DRUGS (9)
  1. TECENTRIQ [Suspect]
     Active Substance: ATEZOLIZUMAB
     Indication: BRONCHIAL CARCINOMA
     Route: 041
     Dates: start: 20191029
  2. CARVEDILOL. [Concomitant]
     Active Substance: CARVEDILOL
     Dosage: 0-1/2-1
     Route: 065
  3. ITERIUM [Concomitant]
     Active Substance: RILMENIDINE
     Dosage: 0-0-1 (IF NEEDED)
     Route: 065
  4. CANDESARTAN CILEXETIL AND HYDROCHLOROTHIAZIDE [Concomitant]
     Active Substance: CANDESARTAN CILEXETIL\HYDROCHLOROTHIAZIDE
     Indication: HYPERTENSION
     Dosage: 32/12.5 MG, 0-1/2-1
     Route: 065
  5. ATORVADIVID [Concomitant]
     Dosage: 0-0-1
     Route: 065
  6. PLAVIX [Concomitant]
     Active Substance: CLOPIDOGREL BISULFATE
     Route: 065
  7. SPIRIVA [Concomitant]
     Active Substance: TIOTROPIUM BROMIDE MONOHYDRATE
     Dosage: 2 STROKES
     Route: 065
  8. UROSIN [ALLOPURINOL] [Concomitant]
     Dosage: 1/2-0-0
     Route: 065
  9. CALCIDURAN [Concomitant]
     Active Substance: ASCORBIC ACID\CALCIUM PHOSPHATE\CHOLECALCIFEROL\CITRIC ACID MONOHYDRATE
     Route: 065

REACTIONS (4)
  - Bone atrophy [Not Recovered/Not Resolved]
  - Osteomyelitis [Not Recovered/Not Resolved]
  - Osteonecrosis [Recovered/Resolved with Sequelae]
  - Pain [Not Recovered/Not Resolved]

NARRATIVE: CASE EVENT DATE: 20200102
